FAERS Safety Report 14387093 (Version 1)
Quarter: 2018Q1

REPORT INFORMATION
  Report Type: Spontaneous
  Country: US (occurrence: US)
  Receive Date: 20180115
  Receipt Date: 20180115
  Transmission Date: 20180509
  Serious: Yes (Other)
  Sender: FDA-Public Use
  Company Number: US-SA-2017SA176922

PATIENT
  Age: 64 Year
  Sex: Female
  Weight: 75.2 kg

DRUGS (7)
  1. ABRAXANE [Concomitant]
     Active Substance: PACLITAXEL
     Route: 042
  2. TAXOTERE [Suspect]
     Active Substance: DOCETAXEL
     Indication: BREAST CANCER
     Route: 051
     Dates: start: 20120621, end: 20120621
  3. TAXOTERE [Suspect]
     Active Substance: DOCETAXEL
     Indication: BREAST CANCER
     Route: 051
     Dates: start: 20120510, end: 20120510
  4. CARBOPLATIN. [Concomitant]
     Active Substance: CARBOPLATIN
     Route: 042
  5. CARBOPLATIN. [Concomitant]
     Active Substance: CARBOPLATIN
     Route: 042
  6. HERCEPTIN [Concomitant]
     Active Substance: TRASTUZUMAB
     Route: 042
  7. HERCEPTIN [Concomitant]
     Active Substance: TRASTUZUMAB
     Route: 042

REACTIONS (1)
  - Alopecia [Not Recovered/Not Resolved]

NARRATIVE: CASE EVENT DATE: 20121221
